FAERS Safety Report 10038067 (Version 1)
Quarter: 2014Q1

REPORT INFORMATION
  Report Type: Spontaneous
  Country: US (occurrence: None)
  Receive Date: 20140306
  Receipt Date: 20140306
  Transmission Date: 20141002
  Serious: Yes (Hospitalization)
  Sender: FDA-Public Use
  Company Number: 163-21880-13082827

PATIENT
  Age: 81 Year
  Sex: Female

DRUGS (19)
  1. REVLIMID [Suspect]
     Indication: PLASMA CELL MYELOMA
     Dosage: 21 IN 28 D , PO
     Route: 048
     Dates: start: 20120730
  2. VITAMIN B12 (CYANOCOBALAMIN) [Concomitant]
  3. FISH OIL (FISH OIL) [Concomitant]
  4. VITAMIN B COMPLEX (B-KOMPLEX ^LECIVA^) [Concomitant]
  5. VICODIN (VICODIN) [Concomitant]
  6. VALTREX (VALACICLVIR HYDROCHLORIDE) [Concomitant]
  7. GABAPENTIN (GABAPENTIN) [Concomitant]
  8. LASIX (FUROSEMIDE) [Concomitant]
  9. CALCIUM +D (OS-CAL) [Concomitant]
  10. ZOFRAN (ONDANSETRON HYDROCHLORIDE) [Concomitant]
  11. STOOL SOFTENER (DOCUSATE SODIUM) [Concomitant]
  12. VITAMIN E (TOCOPHEROL) [Concomitant]
  13. FOLIC ACID (FOLIC ACID) [Concomitant]
  14. ZOMETA (ZOLEDRONIC ACID) [Concomitant]
  15. DEXAMETHASONE (DEXAMETHASONE) [Concomitant]
  16. VELCADE (BORTEZOMIB) [Concomitant]
  17. PROCRIT (ERYTHROPOIETIN) [Concomitant]
  18. VENOFER (SACCHARATED IRON OXIDE) [Concomitant]
  19. ASPIRIN (ACETYLSALICYLIC ACID) (ENTERIC-COATED TABLET) [Concomitant]

REACTIONS (1)
  - Thrombosis [None]
